FAERS Safety Report 4318195-7 (Version None)
Quarter: 2004Q1

REPORT INFORMATION
  Report Type: 
  Country: None (occurrence: None)
  Receive Date: 20040315
  Receipt Date: 20040301
  Transmission Date: 20041129
  Serious: Yes (Life-Threatening, Hospitalization, Disabling)
  Sender: FDA-Public Use
  Company Number: 0002654

PATIENT
  Age: 26 Year
  Sex: Female

DRUGS (5)
  1. INTRALIPID 20% [Suspect]
     Indication: CROHN'S DISEASE
  2. DEXTROSE [Concomitant]
  3. TRAVASOL 10% [Concomitant]
  4. MINERAL TAB [Concomitant]
  5. ELECTROLYTES [Concomitant]

REACTIONS (6)
  - COUGH [None]
  - DYSPNOEA [None]
  - HYPOXIA [None]
  - PULMONARY ARTERY THROMBOSIS [None]
  - PULMONARY GRANULOMA [None]
  - PYREXIA [None]
